FAERS Safety Report 5409573-3 (Version None)
Quarter: 2007Q3

REPORT INFORMATION
  Report Type: 
  Country: None (occurrence: None)
  Receive Date: 20070807
  Receipt Date: 20070731
  Transmission Date: 20080115
  Serious: Yes (Other)
  Sender: FDA-Public Use
  Company Number: 2007BI005911

PATIENT
  Age: 54 Year
  Sex: Female

DRUGS (5)
  1. AVONEX [Suspect]
     Indication: MULTIPLE SCLEROSIS
     Dosage: 30 UG; QW; IM
     Route: 030
     Dates: start: 19971023
  2. BACLOFEN [Concomitant]
  3. NEURONTIN [Concomitant]
  4. AMANTADINE HCL [Concomitant]
  5. AMBIEN [Concomitant]

REACTIONS (4)
  - BALANCE DISORDER [None]
  - BREAST CANCER STAGE II [None]
  - FATIGUE [None]
  - HYPOAESTHESIA [None]
